FAERS Safety Report 7112555-7 (Version None)
Quarter: 2010Q4

REPORT INFORMATION
  Report Type: 
  Country: None (occurrence: None)
  Receive Date: 20101119
  Receipt Date: 20101109
  Transmission Date: 20110411
  Serious: Yes (Death, Hospitalization, Other)
  Sender: FDA-Public Use
  Company Number: US-AMGEN-USASP2010000370

PATIENT

DRUGS (5)
  1. NPLATE [Suspect]
     Dosage: UNK
  2. NPLATE [Suspect]
     Dates: start: 20100804
  3. CORTICOSTEROIDS [Concomitant]
  4. CYCLOSPORINE [Suspect]
  5. PREDNISONE [Suspect]

REACTIONS (15)
  - APLASTIC ANAEMIA [None]
  - BONE PAIN [None]
  - CANDIDIASIS [None]
  - CHILLS [None]
  - DEATH [None]
  - DIARRHOEA [None]
  - FALL [None]
  - FEELING ABNORMAL [None]
  - GENERAL PHYSICAL HEALTH DETERIORATION [None]
  - HAEMATOMA [None]
  - MALAISE [None]
  - NAUSEA [None]
  - PANCYTOPENIA [None]
  - PYREXIA [None]
  - RESPIRATORY FAILURE [None]
